FAERS Safety Report 8469886-8 (Version None)
Quarter: 2012Q2

REPORT INFORMATION
  Report Type: 
  Country: None (occurrence: None)
  Receive Date: 20120627
  Receipt Date: 20120615
  Transmission Date: 20120825
  Serious: Yes (Other)
  Sender: FDA-Public Use
  Company Number: US-BRISTOL-MYERS SQUIBB COMPANY-16692204

PATIENT
  Age: 59 Year
  Sex: Female

DRUGS (2)
  1. ONGLYZA [Suspect]
  2. NEXIUM [Suspect]

REACTIONS (4)
  - IMMOBILE [None]
  - SLEEP APNOEA SYNDROME [None]
  - BACK DISORDER [None]
  - HIATUS HERNIA [None]
